FAERS Safety Report 8345472-5 (Version None)
Quarter: 2012Q2

REPORT INFORMATION
  Report Type: 
  Country: None (occurrence: None)
  Receive Date: 20120508
  Receipt Date: 20120430
  Transmission Date: 20120825
  Serious: Yes (Death)
  Sender: FDA-Public Use
  Company Number: US-CELGENEUS-163-21880-12033494

PATIENT
  Sex: Male

DRUGS (9)
  1. RANITIDINE [Concomitant]
     Dosage: 300 MILLIGRAM
     Route: 048
     Dates: end: 20111101
  2. CARVEDILOL [Concomitant]
     Dosage: 3.125 MILLIGRAM
     Route: 048
     Dates: end: 20111101
  3. POTASSIUM CHLORIDE [Concomitant]
     Dosage: 10 MILLIEQUIVALENTS
     Route: 048
     Dates: end: 20111101
  4. ASPIRIN [Concomitant]
     Dosage: 81 MILLIGRAM
     Route: 048
     Dates: end: 20111101
  5. LIPITOR [Concomitant]
     Dosage: 40 MILLIGRAM
     Route: 048
     Dates: end: 20111101
  6. CLOPIDOGREL [Concomitant]
     Dosage: 75 MILLIGRAM
     Route: 048
     Dates: end: 20111101
  7. FINASTERIDE [Concomitant]
     Indication: PROSTATIC DISORDER
     Dosage: 15 MILLIGRAM
     Route: 048
     Dates: end: 20111101
  8. TAMSULOSIN HCL [Concomitant]
     Indication: PROSTATIC DISORDER
     Dosage: .4 MILLIGRAM
     Route: 048
     Dates: end: 20111101
  9. REVLIMID [Suspect]
     Indication: MULTIPLE MYELOMA
     Dosage: 15 MILLIGRAM
     Route: 048
     Dates: start: 20110829, end: 20111019

REACTIONS (5)
  - ISCHAEMIC CARDIOMYOPATHY [None]
  - PANCYTOPENIA [None]
  - ASTHENIA [None]
  - CARDIAC FAILURE CONGESTIVE [None]
  - DIARRHOEA [None]
